FAERS Safety Report 8802786 (Version 1)
Quarter: 2012Q4

REPORT INFORMATION
  Report Type: 
  Country: US (occurrence: US)
  Receive Date: 20120921
  Receipt Date: 20120921
  Transmission Date: 20130627
  Serious: Yes (Hospitalization, Disabling, Other)
  Sender: FDA-Public Use
  Company Number: US-009507513-1008USA01652

PATIENT

DRUGS (8)
  1. FOSAMAX [Suspect]
     Indication: OSTEOPOROSIS
     Dosage: 10 mg, qd
     Route: 048
     Dates: start: 19981020, end: 20001106
  2. FOSAMAX [Suspect]
     Dosage: 40 mg, QW
     Route: 048
     Dates: start: 20001106, end: 20010611
  3. FOSAMAX [Suspect]
     Dosage: 70 mg, QW
     Route: 048
     Dates: start: 20010611, end: 2008
  4. SYNTHROID [Concomitant]
  5. ZOVIRAX [Concomitant]
     Indication: GENITAL HERPES
     Dosage: 200-400
  6. ZOVIRAX [Concomitant]
     Dosage: UNK UNK, PRN
  7. CALCIUM (UNSPECIFIED) [Concomitant]
     Indication: OSTEOPOROSIS
     Dosage: UNK UNK, qd
  8. ASPIRIN [Concomitant]
     Dosage: 81 mg, UNK

REACTIONS (41)
  - Femur fracture [Unknown]
  - Gait disturbance [Not Recovered/Not Resolved]
  - Tenosynovitis [Not Recovered/Not Resolved]
  - Liver function test abnormal [Unknown]
  - Cardiac murmur [Unknown]
  - Aortic arteriosclerosis [Unknown]
  - Mitral valve incompetence [Unknown]
  - Blood cholesterol increased [Unknown]
  - Basal cell carcinoma [Unknown]
  - Spondylitis [Not Recovered/Not Resolved]
  - Sacroiliitis [Unknown]
  - Tricuspid valve incompetence [Unknown]
  - Hypertension [Unknown]
  - Fall [Unknown]
  - Pulmonary mass [Unknown]
  - Bronchiectasis [Unknown]
  - Atypical mycobacterial infection [Unknown]
  - Spinal osteoarthritis [Unknown]
  - Intervertebral disc degeneration [Unknown]
  - Exostosis [Unknown]
  - Meniscus injury [Unknown]
  - Patellofemoral pain syndrome [Unknown]
  - Ligament sprain [Unknown]
  - Joint effusion [Unknown]
  - Tendon disorder [Unknown]
  - Femur fracture [Recovering/Resolving]
  - Bursitis [Unknown]
  - Arthralgia [Unknown]
  - Femur fracture [Unknown]
  - Gait disturbance [Unknown]
  - Fracture nonunion [Unknown]
  - Flatulence [Unknown]
  - Diarrhoea [Unknown]
  - Weight increased [Unknown]
  - Rectal fissure [Unknown]
  - Breast enlargement [Unknown]
  - Abdominal distension [Unknown]
  - Haemorrhoids [Unknown]
  - Rhinitis allergic [Unknown]
  - Sleep apnoea syndrome [Unknown]
  - Insomnia [Unknown]
